FAERS Safety Report 11939674 (Version 1)
Quarter: 2016Q1

REPORT INFORMATION
  Report Type: Spontaneous
  Country: IT (occurrence: IT)
  Receive Date: 20160122
  Receipt Date: 20160122
  Transmission Date: 20160526
  Serious: Yes (Other)
  Sender: FDA-Public Use
  Company Number: IT-GLAXOSMITHKLINE-IT2016GSK008179

PATIENT
  Sex: Male

DRUGS (1)
  1. AVODART [Suspect]
     Active Substance: DUTASTERIDE
     Dosage: 0.5 MG, UNK
     Dates: start: 2006, end: 2016

REACTIONS (1)
  - Atrial fibrillation [Unknown]
